FAERS Safety Report 5949733-6 (Version None)
Quarter: 2008Q4

REPORT INFORMATION
  Report Type: 
  Country: None (occurrence: None)
  Receive Date: 20081021
  Receipt Date: 20080505
  Transmission Date: 20090506
  Serious: Yes (Other)
  Sender: FDA-Public Use
  Company Number: HQWYE895713JUL06

PATIENT
  Age: 68 Year
  Sex: Female

DRUGS (2)
  1. PREMARIN [Suspect]
     Dosage: .625 MG, 180 MOS. (15 YEARS)
     Dates: start: 19730401, end: 19880101
  2. PROVERA [Suspect]
     Dosage: 10 MG

REACTIONS (1)
  - BREAST CANCER [None]
